FAERS Safety Report 10717809 (Version 1)
Quarter: 2015Q1

REPORT INFORMATION
  Report Type: Spontaneous
  Country: US (occurrence: US)
  Receive Date: 20150116
  Receipt Date: 20150116
  Transmission Date: 20150721
  Serious: Yes (Hospitalization, Other)
  Sender: FDA-Public Use
  Company Number: US-TEVA-533703USA

PATIENT
  Sex: Female

DRUGS (1)
  1. COPAXONE [Suspect]
     Active Substance: GLATIRAMER ACETATE
     Indication: MULTIPLE SCLEROSIS
     Dosage: UNKNOWN FORM STRENGTH

REACTIONS (12)
  - Neuropathy peripheral [Unknown]
  - Multiple sclerosis relapse [Unknown]
  - Macular degeneration [Unknown]
  - Diabetes mellitus [Unknown]
  - Injection site pain [Unknown]
  - Pruritus generalised [Unknown]
  - Transient ischaemic attack [Unknown]
  - Cyclic vomiting syndrome [Unknown]
  - Urticaria [Unknown]
  - Blood insulin decreased [Unknown]
  - Drug ineffective [Unknown]
  - Balance disorder [Unknown]

NARRATIVE: CASE EVENT DATE: 201409
